FAERS Safety Report 6811115-2 (Version None)
Quarter: 2010Q2

REPORT INFORMATION
  Report Type: 
  Country: None (occurrence: None)
  Receive Date: 20100630
  Receipt Date: 20090511
  Transmission Date: 20101027
  Serious: No
  Sender: FDA-Public Use
  Company Number: US-PFIZER INC-2009168687

PATIENT
  Sex: Female

DRUGS (1)
  1. NICOTROL [Suspect]
     Dates: start: 20090205

REACTIONS (4)
  - DRUG TOXICITY [None]
  - MALAISE [None]
  - MEDICATION ERROR [None]
  - VOMITING [None]
